FAERS Safety Report 26059147 (Version 2)
Quarter: 2025Q4

REPORT INFORMATION
  Report Type: Spontaneous
  Country: US (occurrence: US)
  Receive Date: 20251118
  Receipt Date: 20251128
  Transmission Date: 20260117
  Serious: Yes (Hospitalization)
  Sender: TEVA
  Company Number: US-TEVA-VS-3392093

PATIENT
  Age: 60 Year
  Sex: Female

DRUGS (1)
  1. SUCRALFATE [Suspect]
     Active Substance: SUCRALFATE
     Indication: Product used for unknown indication
     Dosage: PERIPHERAL CATHETER
     Route: 042

REACTIONS (2)
  - Superficial vein thrombosis [Recovering/Resolving]
  - Incorrect route of product administration [Recovering/Resolving]
